FAERS Safety Report 9700609 (Version 2)
Quarter: 2013Q4

REPORT INFORMATION
  Report Type: Spontaneous
  Country: US (occurrence: None)
  Receive Date: 20131119
  Receipt Date: 20131204
  Transmission Date: 20140711
  Serious: Yes (Hospitalization, Other)
  Sender: FDA-Public Use
  Company Number: 2013000310

PATIENT
  Age: 42 Year
  Sex: Female
  Weight: 78 kg

DRUGS (4)
  1. ACEON [Suspect]
     Indication: CARDIAC FAILURE
     Route: 048
     Dates: start: 200702
  2. SPIRONOLACTONE ( SPIRONOLACTONE) [Concomitant]
  3. LABETALOL ( LABETALOL) [Concomitant]
  4. DIAZEPAM (DIAZEPAM) [Concomitant]

REACTIONS (2)
  - Cardiac failure [None]
  - Transient ischaemic attack [None]
